FAERS Safety Report 14818039 (Version 3)
Quarter: 2018Q2

REPORT INFORMATION
  Report Type: Spontaneous
  Country: DE (occurrence: DE)
  Receive Date: 20180427
  Receipt Date: 20180625
  Transmission Date: 20180711
  Serious: Yes (Death, Life-Threatening, Hospitalization, Other)
  Sender: FDA-Public Use
  Company Number: DE-ALEXION-A201804962

PATIENT
  Age: 19 Year
  Sex: Female

DRUGS (2)
  1. SOLIRIS [Suspect]
     Active Substance: ECULIZUMAB
     Indication: ATYPICAL HAEMOLYTIC URAEMIC SYNDROME
     Dosage: UNK
     Route: 065
  2. SOLIRIS [Suspect]
     Active Substance: ECULIZUMAB
     Dosage: 1200 MG, UNK
     Route: 065
     Dates: start: 20180329

REACTIONS (20)
  - Neurological symptom [Unknown]
  - Thrombocytopenia [Unknown]
  - Thrombotic microangiopathy [Unknown]
  - Diarrhoea haemorrhagic [Recovered/Resolved]
  - Haemolysis [Unknown]
  - Multiple organ dysfunction syndrome [Fatal]
  - Enteritis [Unknown]
  - Haptoglobin decreased [Unknown]
  - Escherichia test positive [Fatal]
  - Bacterial sepsis [Unknown]
  - Brain oedema [Recovered/Resolved]
  - Blood lactate dehydrogenase increased [Unknown]
  - Generalised oedema [Unknown]
  - Headache [Unknown]
  - Partial seizures [Unknown]
  - Generalised tonic-clonic seizure [Unknown]
  - Condition aggravated [Unknown]
  - Staphylococcus test positive [Unknown]
  - Cardiovascular disorder [Unknown]
  - Abdominal pain [Recovered/Resolved]

NARRATIVE: CASE EVENT DATE: 20180429
